FAERS Safety Report 9166820 (Version 1)
Quarter: 2012Q4

REPORT INFORMATION
  Report Type: 
  Country: US (occurrence: US)
  Receive Date: 20121105
  Receipt Date: 20121105
  Transmission Date: 20130627
  Serious: Yes (Other)
  Sender: FDA-Public Use
  Company Number: US-RB-045840-12

PATIENT
  Age: 69 Year
  Sex: Male

DRUGS (1)
  1. MUCINEX [Suspect]
     Indication: PRODUCT USED FOR UNKNOWN INDICATION
     Route: 048
     Dates: start: 20121020

REACTIONS (4)
  - Lip swelling [Unknown]
  - Eyelid oedema [Unknown]
  - Pruritus generalised [Unknown]
  - Rash macular [Unknown]
